FAERS Safety Report 9473480 (Version 1)
Quarter: 2013Q3

REPORT INFORMATION
  Report Type: Spontaneous
  Country: US (occurrence: US)
  Receive Date: 20130823
  Receipt Date: 20130823
  Transmission Date: 20140515
  Serious: Yes (Hospitalization)
  Sender: FDA-Public Use
  Company Number: US-BRISTOL-MYERS SQUIBB COMPANY-19028653

PATIENT
  Age: 20 Year
  Sex: Male

DRUGS (8)
  1. SPRYCEL [Suspect]
     Indication: ACUTE LYMPHOCYTIC LEUKAEMIA
     Route: 048
     Dates: start: 20130607
  2. MIRALAX [Concomitant]
  3. BACTRIM DS [Concomitant]
  4. ZOFRAN [Concomitant]
  5. TYLENOL [Concomitant]
  6. DAUNORUBICIN [Concomitant]
  7. CYTARABINE [Concomitant]
  8. ASPARAGINASE [Concomitant]

REACTIONS (6)
  - Pyrexia [Not Recovered/Not Resolved]
  - Gastrooesophageal reflux disease [Not Recovered/Not Resolved]
  - Fluid retention [Not Recovered/Not Resolved]
  - Face oedema [Not Recovered/Not Resolved]
  - Heart rate increased [Not Recovered/Not Resolved]
  - Weight increased [Not Recovered/Not Resolved]
